FAERS Safety Report 11020226 (Version 1)
Quarter: 2015Q2

REPORT INFORMATION
  Report Type: Not Available
  Country: IN (occurrence: IN)
  Receive Date: 20150413
  Receipt Date: 20150413
  Transmission Date: 20150821
  Serious: No
  Sender: FDA-Public Use
  Company Number: IN-LUPIN PHARMACEUTICALS INC.-E2B_00003264

PATIENT
  Age: 36 Year
  Sex: Male

DRUGS (6)
  1. COMBUTOL 1000 [Suspect]
     Active Substance: ETHAMBUTOL HYDROCHLORIDE
     Indication: TUBERCULOSIS
     Route: 048
     Dates: start: 20150201, end: 20150225
  2. R-CINEX [Suspect]
     Active Substance: ISONIAZID\RIFAMPIN
     Indication: TUBERCULOSIS
     Route: 048
     Dates: start: 20150201
  3. ARKAMIN [Concomitant]
     Indication: HYPERTENSION
     Route: 065
  4. PZIDE [Suspect]
     Active Substance: PYRAZINAMIDE
     Indication: TUBERCULOSIS
     Route: 048
     Dates: start: 20150131
  5. MEDROL [Suspect]
     Active Substance: METHYLPREDNISOLONE
     Indication: TUBERCULOSIS
     Route: 048
     Dates: start: 20150131
  6. AMODEP AT [Concomitant]
     Indication: HYPERTENSION
     Route: 065

REACTIONS (3)
  - Visual impairment [Not Recovered/Not Resolved]
  - Hallucination [Not Recovered/Not Resolved]
  - Dizziness [Not Recovered/Not Resolved]

NARRATIVE: CASE EVENT DATE: 201502
